FAERS Safety Report 7919714-1 (Version None)
Quarter: 2011Q4

REPORT INFORMATION
  Report Type: 
  Country: None (occurrence: None)
  Receive Date: 20111115
  Receipt Date: 20111101
  Transmission Date: 20120403
  Serious: Yes (Other)
  Sender: FDA-Public Use
  Company Number: 2011P1010117

PATIENT
  Age: 18 Year
  Sex: Female

DRUGS (6)
  1. MORPHINE [Suspect]
     Indication: CAESAREAN SECTION
     Dosage: 100/0.01 MG/ML;X1;INTH
     Route: 037
     Dates: start: 20110814, end: 20110814
  2. MORPHINE [Suspect]
     Indication: ANAESTHESIA PROCEDURE
     Dosage: 100/0.01 MG/ML;X1;INTH
     Route: 037
     Dates: start: 20110814, end: 20110814
  3. FENTANYL-100 [Suspect]
     Indication: ANAESTHESIA PROCEDURE
     Dosage: 15/0.3 MCG/ML;X1;INTH
     Route: 037
     Dates: start: 20110814, end: 20110814
  4. FENTANYL-100 [Suspect]
     Indication: CAESAREAN SECTION
     Dosage: 15/0.3 MCG/ML;X1;INTH
     Route: 037
     Dates: start: 20110814, end: 20110814
  5. MARCAINE [Suspect]
     Indication: CAESAREAN SECTION
     Dosage: 2.5 ML;X1;INTH
     Route: 037
     Dates: start: 20110814, end: 20110814
  6. MARCAINE [Suspect]
     Indication: ANAESTHESIA PROCEDURE
     Dosage: 2.5 ML;X1;INTH
     Route: 037
     Dates: start: 20110814, end: 20110814

REACTIONS (1)
  - INADEQUATE ANALGESIA [None]
